FAERS Safety Report 4711727-6 (Version None)
Quarter: 2005Q3

REPORT INFORMATION
  Report Type: 
  Country: None (occurrence: None)
  Receive Date: 20050712
  Receipt Date: 20050630
  Transmission Date: 20060218
  Serious: Yes (Other)
  Sender: FDA-Public Use
  Company Number: US-KINGPHARMUSA00001-K200500894

PATIENT
  Sex: Female

DRUGS (1)
  1. INTAL [Suspect]
     Dates: end: 20050618

REACTIONS (6)
  - AGEUSIA [None]
  - CHOKING SENSATION [None]
  - DEAFNESS [None]
  - EAR DISCOMFORT [None]
  - FEELING ABNORMAL [None]
  - SINUS CONGESTION [None]
